FAERS Safety Report 9168568 (Version 1)
Quarter: 2013Q1

REPORT INFORMATION
  Report Type: Spontaneous
  Country: FR (occurrence: None)
  Receive Date: 20130308
  Receipt Date: 20130308
  Transmission Date: 20140127
  Serious: Yes (Hospitalization)
  Sender: FDA-Public Use
  Company Number: DSM-2013-00298

PATIENT
  Age: 66 Year
  Sex: Male

DRUGS (4)
  1. ALTEIS DUO [Suspect]
     Indication: HYPERTENSION
     Route: 048
     Dates: end: 20121026
  2. PROFENID [Suspect]
     Indication: PAIN
     Route: 054
     Dates: start: 20121016, end: 20121026
  3. TEMERIT (NEBIVOLOL)(NEBIVOLOL) [Concomitant]
  4. INIPOMP (PANTOPRAZOLE SODIUM)(PANTOPRAZOLE SODIUM) [Concomitant]

REACTIONS (4)
  - Renal failure acute [None]
  - Sepsis [None]
  - Drug interaction [None]
  - Dialysis [None]
